FAERS Safety Report 10334136 (Version 10)
Quarter: 2016Q3

REPORT INFORMATION
  Report Type: Report from Study
  Country: CA (occurrence: CA)
  Receive Date: 20140723
  Receipt Date: 20160719
  Transmission Date: 20161109
  Serious: Yes (Other)
  Sender: FDA-Public Use
  Company Number: CA-ROCHE-1395719

PATIENT
  Age: 28 Year
  Sex: Female
  Weight: 90.7 kg

DRUGS (12)
  1. COUMADIN [Suspect]
     Active Substance: WARFARIN SODIUM
     Indication: PRODUCT USED FOR UNKNOWN INDICATION
     Route: 065
     Dates: end: 201402
  2. METHOTREXATE. [Concomitant]
     Active Substance: METHOTREXATE
     Dosage: STOPPING DUE TO POSSIBLE REACTION, ASSESSING IF TRUE ALLERGY
     Route: 065
  3. IMURAN [Concomitant]
     Active Substance: AZATHIOPRINE
  4. METFORMIN [Suspect]
     Active Substance: METFORMIN HYDROCHLORIDE
     Indication: MENSTRUAL DISORDER
     Route: 065
  5. PLAQUENIL [Suspect]
     Active Substance: HYDROXYCHLOROQUINE SULFATE
     Indication: PRODUCT USED FOR UNKNOWN INDICATION
     Route: 065
  6. PREDNISONE. [Suspect]
     Active Substance: PREDNISONE
     Route: 065
  7. RITUXAN [Suspect]
     Active Substance: RITUXIMAB
     Indication: DERMATOMYOSITIS
     Dosage: DATES OF LAST RITUXIMAB INFUSION: 16/DEC/2013, 26/JUN/2014
     Route: 042
     Dates: start: 20130529
  8. CYMBALTA [Suspect]
     Active Substance: DULOXETINE HYDROCHLORIDE
     Indication: PAIN
     Route: 065
  9. METFORMIN [Suspect]
     Active Substance: METFORMIN HYDROCHLORIDE
     Indication: WEIGHT DECREASED
  10. SULFASALAZINE. [Suspect]
     Active Substance: SULFASALAZINE
     Indication: PRODUCT USED FOR UNKNOWN INDICATION
     Route: 065
  11. PREDNISONE. [Suspect]
     Active Substance: PREDNISONE
     Indication: PRODUCT USED FOR UNKNOWN INDICATION
     Route: 065
     Dates: end: 201307
  12. XARELTO [Concomitant]
     Active Substance: RIVAROXABAN
     Route: 065
     Dates: start: 201402

REACTIONS (18)
  - Nausea [Recovered/Resolved]
  - Pain [Unknown]
  - Joint range of motion decreased [Unknown]
  - Drug ineffective [Unknown]
  - Dermatomyositis [Not Recovered/Not Resolved]
  - Thrombosis [Unknown]
  - Hepatic cirrhosis [Unknown]
  - Abasia [Unknown]
  - Nasopharyngitis [Unknown]
  - Weight increased [Unknown]
  - Malaise [Unknown]
  - Haemorrhage [Unknown]
  - Uterine disorder [Unknown]
  - Bronchitis [Not Recovered/Not Resolved]
  - Anovulatory cycle [Recovered/Resolved]
  - Impaired work ability [Unknown]
  - Hepatic enzyme increased [Unknown]
  - Off label use [Unknown]

NARRATIVE: CASE EVENT DATE: 201401
